FAERS Safety Report 12287344 (Version 1)
Quarter: 2016Q2

REPORT INFORMATION
  Report Type: Spontaneous
  Country: BR (occurrence: BR)
  Receive Date: 20160420
  Receipt Date: 20160420
  Transmission Date: 20160815
  Serious: Yes (Hospitalization)
  Sender: FDA-Public Use
  Company Number: BR-009507513-1604BRA011045

PATIENT
  Age: 36 Year
  Sex: Female
  Weight: 61 kg

DRUGS (3)
  1. NUVARING [Suspect]
     Active Substance: ETHINYL ESTRADIOL\ETONOGESTREL
     Indication: CONTRACEPTION
     Dosage: 1 RING, QM (3 WEEKS OF USE AND 1 WEEK OF PAUSE)
     Route: 067
     Dates: start: 20160411
  2. NUVARING [Suspect]
     Active Substance: ETHINYL ESTRADIOL\ETONOGESTREL
     Indication: AMENORRHOEA
     Dosage: 1 RING, Q3W (USING FOR 21 DAYS, NOT PERFORMING THE PAUSE OF 7 DAYS IN BETWEEN)
     Route: 067
     Dates: start: 2015, end: 2015
  3. NUVARING [Suspect]
     Active Substance: ETHINYL ESTRADIOL\ETONOGESTREL
     Dosage: 1 RING (3 WEEKS OF USE, 1 WEEK OF PAUSE)
     Route: 067
     Dates: start: 2008, end: 2008

REACTIONS (5)
  - Diverticulitis [Recovered/Resolved]
  - Menstrual disorder [Recovered/Resolved]
  - Off label use [Recovered/Resolved]
  - Inappropriate schedule of drug administration [Unknown]
  - Diverticulum [Not Recovered/Not Resolved]

NARRATIVE: CASE EVENT DATE: 2015
